FAERS Safety Report 7197135-X (Version None)
Quarter: 2010Q4

REPORT INFORMATION
  Report Type: 
  Country: None (occurrence: None)
  Receive Date: 20101224
  Receipt Date: 20101214
  Transmission Date: 20110411
  Serious: Yes (Other)
  Sender: FDA-Public Use
  Company Number: PHHY2010DE71034

PATIENT
  Age: 70 Year
  Sex: Male

DRUGS (5)
  1. LEPONEX [Suspect]
     Indication: PSYCHOTIC DISORDER
     Dosage: 75 MG/DAY
     Route: 048
  2. LEPONEX [Suspect]
     Dosage: 100 MG/DAY
     Route: 048
     Dates: start: 20100819
  3. LEPONEX [Suspect]
     Dosage: 150 MG/DAY
     Route: 048
     Dates: start: 20100913
  4. LEPONEX [Suspect]
     Dosage: 175 MG/DAY
     Route: 048
     Dates: start: 20101018
  5. METOPROLOL SUCCINATE [Concomitant]
     Indication: TREMOR
     Dosage: 0.5 TABLET
     Route: 048

REACTIONS (5)
  - COGNITIVE DISORDER [None]
  - DYSTONIA [None]
  - EOSINOPHIL COUNT INCREASED [None]
  - PERIPHERAL VASCULAR DISORDER [None]
  - PLEUROTHOTONUS [None]
